FAERS Safety Report 6601038-6 (Version None)
Quarter: 2010Q1

REPORT INFORMATION
  Report Type: 
  Country: None (occurrence: None)
  Receive Date: 20100225
  Receipt Date: 20100217
  Transmission Date: 20100710
  Serious: Yes (Hospitalization)
  Sender: FDA-Public Use
  Company Number: JP-JNJFOC-20091106053

PATIENT
  Sex: Male
  Weight: 73 kg

DRUGS (29)
  1. BLINDED; FENTANYL [Suspect]
     Indication: PROCEDURAL PAIN
     Route: 062
  2. BLINDED; FENTANYL [Suspect]
     Indication: COMPLEX REGIONAL PAIN SYNDROME
     Route: 062
  3. BLINDED; FENTANYL [Suspect]
     Indication: POST HERPETIC NEURALGIA
     Route: 062
  4. PLACEBO [Suspect]
     Indication: PROCEDURAL PAIN
     Route: 062
  5. PLACEBO [Suspect]
     Indication: COMPLEX REGIONAL PAIN SYNDROME
     Route: 062
  6. PLACEBO [Suspect]
     Indication: POST HERPETIC NEURALGIA
     Route: 062
  7. FENTANYL [Suspect]
     Indication: PROCEDURAL PAIN
     Route: 062
  8. FENTANYL [Suspect]
     Indication: COMPLEX REGIONAL PAIN SYNDROME
     Route: 062
  9. FENTANYL [Suspect]
     Indication: POST HERPETIC NEURALGIA
     Route: 062
  10. LOXONIN [Concomitant]
     Indication: TRIGEMINAL NEURALGIA
     Route: 048
  11. LOXOPROFEN [Concomitant]
     Indication: TRIGEMINAL NEURALGIA
     Route: 048
  12. LOXOPROFEN [Concomitant]
     Route: 048
  13. NOVAMIN [Concomitant]
     Indication: PROPHYLAXIS OF NAUSEA AND VOMITING
     Route: 048
  14. MORPHINE HYDROCHLORIDE [Concomitant]
     Indication: TRIGEMINAL NEURALGIA
     Route: 048
  15. SELBEX [Concomitant]
     Indication: GASTRITIS PROPHYLAXIS
     Route: 048
  16. SELBEX [Concomitant]
     Route: 048
  17. RESLIN [Concomitant]
     Indication: TRIGEMINAL NEURALGIA
     Route: 048
  18. BLOPRESS [Concomitant]
     Indication: HYPERTENSION
     Route: 048
  19. BLOPRESS [Concomitant]
     Route: 048
  20. BLOPRESS [Concomitant]
     Route: 048
  21. AMLODIN OD [Concomitant]
     Indication: HYPERTENSION
     Route: 048
  22. AMLODIN OD [Concomitant]
     Route: 048
  23. AMLODIN OD [Concomitant]
     Route: 048
  24. ALLOZYM [Concomitant]
     Indication: HYPERURICAEMIA
     Route: 048
  25. ALLOZYM [Concomitant]
     Route: 048
  26. ALLOZYM [Concomitant]
     Route: 048
  27. BIO-THREE [Concomitant]
     Indication: BOWEL MOVEMENT IRREGULARITY
     Route: 048
  28. MAGLAX [Concomitant]
     Indication: CONSTIPATION PROPHYLAXIS
     Route: 048
  29. KREMEZIN [Concomitant]
     Indication: RENAL FAILURE CHRONIC
     Route: 048
     Dates: start: 20091126

REACTIONS (1)
  - RENAL IMPAIRMENT [None]
